FAERS Safety Report 4271992-9 (Version None)
Quarter: 2004Q1

REPORT INFORMATION
  Report Type: 
  Country: None (occurrence: None)
  Receive Date: 20040115
  Receipt Date: 20020812
  Transmission Date: 20041129
  Serious: Yes (Hospitalization)
  Sender: FDA-Public Use
  Company Number: US-BRISTOL-MYERS SQUIBB COMPANY-11993219

PATIENT
  Age: 77 Year
  Sex: Male

DRUGS (18)
  1. PRAVASTATIN SODIUM [Suspect]
     Dosage: THERAPY INTERRUPTED; LAST DOSE PRIOR TO EVENT: 11-MAY-2002
     Route: 048
     Dates: start: 20001216
  2. GATIFLOXACIN [Suspect]
     Dosage: THERAPY INTERRUPTED; LAST DOSE PRIOR TO EVENT: 11-MAY-2002
     Route: 048
     Dates: start: 20010105
  3. COUMADIN [Suspect]
     Route: 048
     Dates: start: 20010607, end: 20020512
  4. FERROUS SULFATE TAB [Concomitant]
     Dosage: DOSAGE FORM:  TABLET
     Route: 048
     Dates: start: 20020501
  5. SYNTHROID [Concomitant]
     Route: 048
     Dates: start: 20010220
  6. MICRO-K [Concomitant]
     Route: 048
     Dates: start: 20010607
  7. PREVACID [Concomitant]
     Route: 048
     Dates: start: 20010607
  8. LASIX [Concomitant]
     Route: 048
     Dates: start: 20010607
  9. CAPOTEN [Concomitant]
     Route: 048
     Dates: start: 20010607
  10. ASPIRIN [Concomitant]
     Route: 048
     Dates: start: 20010607
  11. COREG [Concomitant]
     Route: 048
     Dates: start: 20010607
  12. LANOXIN [Concomitant]
     Dates: start: 20010607
  13. ISORDIL [Concomitant]
     Dates: start: 20010607
  14. ALLOPURINOL [Concomitant]
     Dates: start: 20000101
  15. GLUCOTROL [Concomitant]
     Dosage: DOSAGE FORM:  TABLET
     Dates: start: 20010101
  16. ZAROXOLYN [Concomitant]
     Dates: start: 20020509
  17. ALTACE [Concomitant]
     Dates: start: 20020509
  18. PRIMIDONE [Concomitant]
     Dates: start: 20020509

REACTIONS (7)
  - ANAEMIA [None]
  - ASTHENIA [None]
  - BENIGN NEOPLASM [None]
  - COLONIC POLYP [None]
  - GASTRITIS EROSIVE [None]
  - GASTROINTESTINAL HAEMORRHAGE [None]
  - POLYP [None]
